FAERS Safety Report 9335914 (Version 3)
Quarter: 2014Q2

REPORT INFORMATION
  Report Type: Report from Study
  Country: GB (occurrence: GB)
  Receive Date: 20130607
  Receipt Date: 20140527
  Transmission Date: 20141212
  Serious: Yes (Death, Hospitalization, Other)
  Sender: FDA-Public Use
  Company Number: GB-ROCHE-1231562

PATIENT
  Age: 91 Year
  Sex: Female

DRUGS (4)
  1. RANIBIZUMAB [Suspect]
     Indication: AGE-RELATED MACULAR DEGENERATION
     Route: 050
     Dates: start: 20110310
  2. RANIBIZUMAB [Suspect]
     Route: 050
     Dates: start: 20120422, end: 20120422
  3. RANIBIZUMAB [Suspect]
     Route: 050
     Dates: start: 20121221, end: 20121221
  4. WARFARIN [Concomitant]

REACTIONS (21)
  - Death [Fatal]
  - Dehydration [Recovered/Resolved]
  - Constipation [Recovered/Resolved]
  - Cerebral atrophy [Unknown]
  - C-reactive protein increased [Recovering/Resolving]
  - Blood sodium decreased [Recovered/Resolved]
  - Blood urea increased [Recovered/Resolved]
  - Prothrombin level increased [Recovered/Resolved]
  - Neutrophil count increased [Unknown]
  - Lymphocyte count decreased [Unknown]
  - Eosinophil count decreased [Unknown]
  - Blood calcium decreased [Unknown]
  - Blood albumin decreased [Not Recovered/Not Resolved]
  - Blood thyroid stimulating hormone increased [Recovered/Resolved]
  - Haemoglobin decreased [Unknown]
  - Red blood cell count decreased [Unknown]
  - Haematocrit decreased [Unknown]
  - Platelet count decreased [Unknown]
  - International normalised ratio increased [Unknown]
  - Cerebral small vessel ischaemic disease [Unknown]
  - Lacunar infarction [Unknown]
